FAERS Safety Report 22172908 (Version 1)
Quarter: 2023Q2

REPORT INFORMATION
  Report Type: Spontaneous
  Country: US (occurrence: None)
  Receive Date: 20230403
  Receipt Date: 20230403
  Transmission Date: 20230721
  Serious: Yes (Death)
  Sender: FDA-Public Use
  Company Number: None

PATIENT
  Age: 68 Year
  Sex: Male
  Weight: 65.25 kg

DRUGS (13)
  1. REVLIMID [Suspect]
     Active Substance: LENALIDOMIDE
     Indication: Plasma cell myeloma
     Dosage: FREQUENCY : DAILY;?
     Route: 048
     Dates: start: 20221205
  2. ATORVASTATIN [Concomitant]
     Active Substance: ATORVASTATIN
  3. B Complex 1.7 mg-20 mg-2 mg-1.2 mg/mL sublingual liquid [Concomitant]
  4. Colace 100 mg capsule [Concomitant]
  5. dexamethasone 4 mg table [Concomitant]
  6. Ex-Lax (sennosides) 15 mg tablet [Concomitant]
  7. FINASTERIDE [Concomitant]
     Active Substance: FINASTERIDE
  8. gabapentin 400 mg capsule [Concomitant]
  9. lysine 500 mg tablet [Concomitant]
  10. ondansetron 4 mg disintegrating tablet [Concomitant]
  11. OXYCODONE [Concomitant]
     Active Substance: OXYCODONE
  12. Tums E-X 300 mg (750 mg) chewable tablet [Concomitant]
  13. Tylenol 8 Hour 650 mg tablet,extended release [Concomitant]

REACTIONS (1)
  - Death [None]

NARRATIVE: CASE EVENT DATE: 20230320
